FAERS Safety Report 4454061-4 (Version None)
Quarter: 2004Q3

REPORT INFORMATION
  Report Type: 
  Country: None (occurrence: None)
  Receive Date: 20040902
  Receipt Date: 20040713
  Transmission Date: 20050211
  Serious: No
  Sender: FDA-Public Use
  Company Number: 200419144BWH

PATIENT
  Age: 60 Year
  Sex: Male

DRUGS (3)
  1. LEVITRA [Suspect]
     Indication: ERECTILE DYSFUNCTION
     Dosage: 10 MG, QD, ORAL
     Route: 048
     Dates: start: 20040711
  2. REGULAR STRENGTH (325MG) ASPIRIN [Concomitant]
  3. MULTI-VITAMIN [Concomitant]

REACTIONS (2)
  - DRUG INEFFECTIVE [None]
  - ERECTILE DYSFUNCTION [None]
